FAERS Safety Report 5782921-0 (Version None)
Quarter: 2008Q2

REPORT INFORMATION
  Report Type: 
  Country: None (occurrence: None)
  Receive Date: 20080624
  Receipt Date: 20080613
  Transmission Date: 20081010
  Serious: Yes (Other)
  Sender: FDA-Public Use
  Company Number: US-WYE-H04488808

PATIENT
  Sex: Female
  Weight: 65.83 kg

DRUGS (1)
  1. ADVIL [Suspect]
     Indication: MENSTRUAL DISCOMFORT
     Dosage: 1 TABLET 1 TIME
     Route: 048
     Dates: start: 20080611, end: 20080611

REACTIONS (5)
  - HYPERSENSITIVITY [None]
  - OEDEMA MOUTH [None]
  - PHARYNGEAL OEDEMA [None]
  - SWELLING FACE [None]
  - SWOLLEN TONGUE [None]
